FAERS Safety Report 20073846 (Version 1)
Quarter: 2021Q4

REPORT INFORMATION
  Report Type: Spontaneous
  Country: US (occurrence: US)
  Receive Date: 20211116
  Receipt Date: 20211116
  Transmission Date: 20220303
  Serious: No
  Sender: FDA-Public Use
  Company Number: US-ALLERGAN-2048648US

PATIENT
  Sex: Male

DRUGS (3)
  1. ALPHAGAN P [Suspect]
     Active Substance: BRIMONIDINE TARTRATE
     Indication: Intraocular pressure increased
     Dosage: 2 GTT, BID
     Route: 047
  2. CORTISONE [Concomitant]
     Active Substance: CORTISONE
     Indication: Hypersensitivity
  3. ELASTIN [Concomitant]

REACTIONS (3)
  - Off label use [Unknown]
  - Hypoaesthesia eye [Not Recovered/Not Resolved]
  - Eye pain [Not Recovered/Not Resolved]
